FAERS Safety Report 7287258-9 (Version None)
Quarter: 2011Q1

REPORT INFORMATION
  Report Type: 
  Country: None (occurrence: None)
  Receive Date: 20110211
  Receipt Date: 20110131
  Transmission Date: 20110831
  Serious: Yes (Death)
  Sender: FDA-Public Use
  Company Number: JP-ROCHE-729227

PATIENT
  Age: 67 Year
  Sex: Female

DRUGS (4)
  1. MELPHALAN [Concomitant]
     Dosage: FORM: UNCERTAINTY
  2. CELLCEPT [Suspect]
     Indication: GRAFT VERSUS HOST DISEASE
     Dosage: DOSAGE IS UNCERTAIN
     Route: 048
  3. TACROLIMUS [Concomitant]
     Dosage: FORM: UNCERTAINTY DOSAGE IS UNCERTAIN
  4. FLUDARABINE PHOSPHATE [Concomitant]
     Dosage: FORM: UNCERTAINTY

REACTIONS (1)
  - MULTI-ORGAN FAILURE [None]
